FAERS Safety Report 25921400 (Version 2)
Quarter: 2025Q4

REPORT INFORMATION
  Report Type: Spontaneous
  Country: US (occurrence: US)
  Receive Date: 20251014
  Receipt Date: 20251108
  Transmission Date: 20260117
  Serious: No
  Sender: SANOFI AVENTIS
  Company Number: US-SA-2025SA305199

PATIENT
  Age: 30 Year
  Sex: Female

DRUGS (2)
  1. DUPIXENT [Suspect]
     Active Substance: DUPILUMAB
     Indication: Eosinophilic oesophagitis
     Dosage: 300 MG, QW
     Route: 058
     Dates: start: 20250702
  2. FERROUS SULFATE [Concomitant]
     Active Substance: FERROUS SULFATE
     Dosage: UNK

REACTIONS (6)
  - Diffuse alopecia [Not Recovered/Not Resolved]
  - Dermatitis contact [Recovering/Resolving]
  - Condition aggravated [Recovering/Resolving]
  - Rash papular [Recovering/Resolving]
  - Rash erythematous [Recovering/Resolving]
  - Rash pruritic [Recovering/Resolving]

NARRATIVE: CASE EVENT DATE: 20250101
